FAERS Safety Report 5714306-7 (Version None)
Quarter: 2008Q2

REPORT INFORMATION
  Report Type: 
  Country: None (occurrence: None)
  Receive Date: 20080421
  Receipt Date: 20080416
  Transmission Date: 20081010
  Serious: Yes (Other)
  Sender: FDA-Public Use
  Company Number: 2008SP006823

PATIENT
  Age: 23 Year
  Sex: Male

DRUGS (7)
  1. BETAMETHASONE SODIUM PHOSPHATE [Suspect]
     Indication: PEMPHIGUS
     Dosage: 30 MG; QD; 20 MG; QD;  40 MG; QD;  25 MG; QD
     Dates: start: 20030901
  2. PREDNISOLONE [Suspect]
     Indication: PEMPHIGUS
     Dosage: 60 MG; QD; PO;  30 MG; QD
     Route: 048
     Dates: start: 20020502
  3. CYCLOSPORINE [Suspect]
     Indication: PEMPHIGUS
     Dosage: 250 MG; QD; PO
     Route: 048
     Dates: start: 20020701
  4. METHYLPREDNISOLONE SODIUM SUCCINATE [Suspect]
     Indication: PEMPHIGUS
     Dosage: 1 GM; QD
     Dates: start: 20030902
  5. CYCLOSPORINE [Concomitant]
  6. METHYLPREDNISOLONE SODIUM SUCCINATE [Concomitant]
  7. MINOCYCLINE  HYDROCHLORIDE [Concomitant]

REACTIONS (9)
  - BACTERIAL INFECTION [None]
  - BLOOD LACTATE DEHYDROGENASE INCREASED [None]
  - CONDITION AGGRAVATED [None]
  - FALL [None]
  - INJURY [None]
  - RASH PUSTULAR [None]
  - SCAR [None]
  - SCRATCH [None]
  - TRICHOPHYTIC GRANULOMA [None]
